FAERS Safety Report 8444861-8 (Version None)
Quarter: 2012Q2

REPORT INFORMATION
  Report Type: 
  Country: None (occurrence: None)
  Receive Date: 20120618
  Receipt Date: 20120612
  Transmission Date: 20120825
  Serious: Yes (Death, Hospitalization, Other)
  Sender: FDA-Public Use
  Company Number: PHEH2011US013014

PATIENT
  Sex: Female
  Weight: 64.399 kg

DRUGS (15)
  1. MORPHINE [Concomitant]
     Dosage: UNK
  2. ATIVAN [Concomitant]
     Dosage: 1 DF, QID
     Route: 048
  3. MACROBID [Concomitant]
     Dosage: 1 DF, BID
     Route: 048
     Dates: start: 20111013
  4. GILENYA [Suspect]
     Dosage: 0.5 MG, QD
     Route: 048
     Dates: start: 20110725, end: 20111214
  5. ATENOLOL [Concomitant]
     Dosage: 25 MG, QD
     Route: 048
  6. OMEPRAZOLE [Concomitant]
     Dosage: 20 MG, QD
     Route: 048
  7. PROPAFENONE HCL [Concomitant]
     Dosage: 1 DF, BID
     Route: 048
  8. CELEXA [Concomitant]
     Dosage: 40 MG, QD
     Route: 048
  9. NAPROXEN [Concomitant]
     Dosage: 500 MG, QD
     Route: 048
  10. CYMBALTA [Concomitant]
     Dosage: 50 MG, BID
     Route: 048
  11. ALPRAZOLAM [Concomitant]
     Dosage: 1 MG, PRN
     Route: 048
  12. CARISOPRODOL [Concomitant]
     Dosage: 350 MG, TID
     Route: 048
  13. VESICARE [Concomitant]
     Dosage: 5 MG, QD
     Route: 048
     Dates: start: 20110916
  14. AZATHIOPRINE [Concomitant]
     Dosage: 50 MG, QD
     Route: 048
  15. BACLOFEN [Concomitant]
     Dosage: 20 MG, QID
     Route: 048

REACTIONS (39)
  - BLOOD ALBUMIN DECREASED [None]
  - BLOOD POTASSIUM DECREASED [None]
  - PERIPHERAL COLDNESS [None]
  - NODAL ARRHYTHMIA [None]
  - ELECTROCARDIOGRAM PR PROLONGATION [None]
  - EXCESSIVE GRANULATION TISSUE [None]
  - BLOOD PRESSURE DECREASED [None]
  - BLOOD BICARBONATE INCREASED [None]
  - BLOOD CREATINE PHOSPHOKINASE DECREASED [None]
  - PREALBUMIN DECREASED [None]
  - RECTAL DISCHARGE [None]
  - ACUTE RESPIRATORY DISTRESS SYNDROME [None]
  - OXYGEN SATURATION DECREASED [None]
  - URINARY TRACT INFECTION [None]
  - URINE ABNORMALITY [None]
  - PCO2 INCREASED [None]
  - WHITE BLOOD CELL COUNT INCREASED [None]
  - BLOOD CALCIUM DECREASED [None]
  - INTESTINAL PERFORATION [None]
  - PYREXIA [None]
  - CHROMATURIA [None]
  - WHITE BLOOD CELLS URINE POSITIVE [None]
  - RED BLOOD CELLS URINE POSITIVE [None]
  - BLOOD CHLORIDE INCREASED [None]
  - BLOOD GLUCOSE INCREASED [None]
  - HAEMATOCRIT DECREASED [None]
  - CATHETER SITE RELATED REACTION [None]
  - VAGINAL HAEMORRHAGE [None]
  - ULTRASOUND SCAN ABNORMAL [None]
  - PROTEIN TOTAL DECREASED [None]
  - RECTAL HAEMORRHAGE [None]
  - URETHRITIS NONINFECTIVE [None]
  - BLOOD SODIUM DECREASED [None]
  - RED BLOOD CELL COUNT DECREASED [None]
  - BLOOD UREA INCREASED [None]
  - GLOMERULAR FILTRATION RATE DECREASED [None]
  - BLOOD MAGNESIUM DECREASED [None]
  - PO2 INCREASED [None]
  - NEUTROPHIL PERCENTAGE INCREASED [None]
